FAERS Safety Report 10272685 (Version 2)
Quarter: 2014Q3

REPORT INFORMATION
  Report Type: Report from Study
  Country: IN (occurrence: IN)
  Receive Date: 20140702
  Receipt Date: 20140725
  Transmission Date: 20150326
  Serious: Yes (Hospitalization)
  Sender: FDA-Public Use
  Company Number: PHHY2014IN080944

PATIENT
  Age: 76 Year
  Sex: Male
  Weight: 70 kg

DRUGS (3)
  1. ACLASTA [Suspect]
     Active Substance: ZOLEDRONIC ACID
     Indication: OSTEOPOROSIS
     Dosage: 5 MG, YEARLY
     Route: 042
     Dates: start: 20140519
  2. ASPIRIN. [Concomitant]
     Active Substance: ASPIRIN
     Dosage: UNK UKN, QD
     Route: 048
  3. MACALVIT [Concomitant]
     Dosage: UNK UKN, UNK
     Route: 048
     Dates: start: 20140519

REACTIONS (6)
  - Spinal cord compression [Unknown]
  - Gait disturbance [Unknown]
  - Fall [Unknown]
  - Spinal pain [Unknown]
  - Dizziness [Recovered/Resolved with Sequelae]
  - Spinal fracture [Unknown]

NARRATIVE: CASE EVENT DATE: 20140623
